FAERS Safety Report 14393594 (Version 1)
Quarter: 2018Q1

REPORT INFORMATION
  Report Type: Spontaneous
  Country: US (occurrence: US)
  Receive Date: 20180116
  Receipt Date: 20180116
  Transmission Date: 20180509
  Serious: Yes (Other)
  Sender: FDA-Public Use
  Company Number: None

PATIENT
  Age: 63 Year
  Sex: Female
  Weight: 79.38 kg

DRUGS (5)
  1. ONE A DAY WOMEN^S [Concomitant]
     Active Substance: MINERALS\VITAMINS
  2. OMEGA 3 [Concomitant]
     Active Substance: OMEGA-3 FATTY ACIDS
  3. VESICARE [Suspect]
     Active Substance: SOLIFENACIN SUCCINATE
     Indication: HYPERTONIC BLADDER
     Route: 048
     Dates: start: 20151011, end: 20160115
  4. EYLEA [Concomitant]
     Active Substance: AFLIBERCEPT
  5. CITRACAL [Concomitant]
     Active Substance: CALCIUM CITRATE

REACTIONS (5)
  - Retinal haemorrhage [None]
  - Hypertension [None]
  - Macular degeneration [None]
  - Nervousness [None]
  - Heart rate increased [None]

NARRATIVE: CASE EVENT DATE: 20151222
